FAERS Safety Report 12707773 (Version 1)
Quarter: 2016Q3

REPORT INFORMATION
  Report Type: Spontaneous
  Country: US (occurrence: US)
  Receive Date: 20160901
  Receipt Date: 20160901
  Transmission Date: 20161109
  Serious: Yes (Other)
  Sender: FDA-Public Use
  Company Number: US-BAYER-2016-169697

PATIENT
  Age: 56 Year
  Sex: Female

DRUGS (1)
  1. BAYER LOW DOSE [Suspect]
     Active Substance: ASPIRIN
     Dosage: UNK

REACTIONS (1)
  - Gastrointestinal haemorrhage [Unknown]
